FAERS Safety Report 6688791-0 (Version None)
Quarter: 2010Q2

REPORT INFORMATION
  Report Type: 
  Country: None (occurrence: None)
  Receive Date: 20100420
  Receipt Date: 20100412
  Transmission Date: 20101027
  Serious: Yes (Hospitalization)
  Sender: FDA-Public Use
  Company Number: JP-BRISTOL-MYERS SQUIBB COMPANY-15032626

PATIENT
  Age: 67 Year
  Sex: Female
  Weight: 41 kg

DRUGS (8)
  1. ERBITUX [Suspect]
     Indication: RECTAL CANCER
     Dosage: 1DEC09:250MG/M2:3 INF 22DEC09:6 INF 24NOV09-23FEB2010:91D 9MAR2010-200MG/M2 1/1 WK
     Route: 041
     Dates: start: 20091117
  2. IRINOTECAN HYDROCHLORIDE [Concomitant]
     Indication: RECTAL CANCER
     Dosage: 12JAN2010
     Route: 041
     Dates: start: 20091124, end: 20100223
  3. POLARAMINE [Concomitant]
     Indication: PREMEDICATION
     Route: 041
  4. DEXART [Concomitant]
     Indication: PREMEDICATION
     Route: 041
     Dates: start: 20091117
  5. NAUZELIN [Concomitant]
     Indication: ANTIEMETIC SUPPORTIVE CARE
     Route: 048
     Dates: start: 20091228
  6. LORFENAMIN [Concomitant]
     Route: 048
  7. MUCOSTA [Concomitant]
     Route: 041
  8. DUROTEP [Concomitant]
     Route: 062
     Dates: start: 20090714

REACTIONS (5)
  - ACNE [None]
  - DECREASED APPETITE [None]
  - DEVICE RELATED INFECTION [None]
  - NEUTROPHIL COUNT DECREASED [None]
  - WHITE BLOOD CELL COUNT DECREASED [None]
